FAERS Safety Report 10051642 (Version 1)
Quarter: 2014Q2

REPORT INFORMATION
  Report Type: Spontaneous
  Country: US (occurrence: US)
  Receive Date: 20140401
  Receipt Date: 20140401
  Transmission Date: 20141212
  Serious: Yes (Other)
  Sender: FDA-Public Use
  Company Number: CHPA2014US004567

PATIENT
  Sex: Male

DRUGS (3)
  1. DESENEX (UNDECYLENIC ACID) [Suspect]
     Dosage: UNK
  2. DESENEX (UNDECYLENIC ACID) [Suspect]
     Dosage: UNK
     Route: 061
  3. DESENEX ANTIFUNGAL POWDER [Suspect]
     Dosage: UNK

REACTIONS (2)
  - Coeliac disease [Not Recovered/Not Resolved]
  - Expired product administered [Unknown]
